FAERS Safety Report 5347152-7 (Version None)
Quarter: 2007Q2

REPORT INFORMATION
  Report Type: 
  Country: None (occurrence: None)
  Receive Date: 20070509
  Receipt Date: 20060626
  Transmission Date: 20071010
  Serious: Yes (Other)
  Sender: FDA-Public Use
  Company Number: HQWYE395326JUN06

PATIENT
  Sex: Female

DRUGS (2)
  1. PROTONIX [Suspect]
     Indication: GASTROINTESTINAL ULCER HAEMORRHAGE
     Dosage: SEE IMAGE
     Route: 042
  2. PROTONIX [Suspect]
     Indication: PROPHYLAXIS
     Dosage: SEE IMAGE
     Route: 042

REACTIONS (1)
  - GASTRIC PH DECREASED [None]
